FAERS Safety Report 23059989 (Version 1)
Quarter: 2023Q4

REPORT INFORMATION
  Report Type: Spontaneous
  Country: US (occurrence: US)
  Receive Date: 20231012
  Receipt Date: 20231012
  Transmission Date: 20240110
  Serious: Yes (Hospitalization, Other)
  Sender: FDA-Public Use
  Company Number: US-GLAXOSMITHKLINE-US2023GSK139500

PATIENT

DRUGS (2)
  1. ALBUTEROL [Suspect]
     Active Substance: ALBUTEROL
     Indication: Asthma
     Dosage: UNK
     Route: 055
  2. ALBUTEROL [Suspect]
     Active Substance: ALBUTEROL
     Indication: Asthmatic crisis

REACTIONS (6)
  - Bronchospasm [Recovering/Resolving]
  - Condition aggravated [Recovering/Resolving]
  - Airway peak pressure increased [Recovering/Resolving]
  - Acidosis [Unknown]
  - Pneumothorax [Unknown]
  - Drug ineffective [Unknown]
